FAERS Safety Report 8045524-3 (Version None)
Quarter: 2012Q1

REPORT INFORMATION
  Report Type: 
  Country: None (occurrence: None)
  Receive Date: 20120113
  Receipt Date: 20120105
  Transmission Date: 20120608
  Serious: Yes (Other)
  Sender: FDA-Public Use
  Company Number: CA-JNJFOC-20120102564

PATIENT
  Sex: Female
  Weight: 47 kg

DRUGS (7)
  1. PENTASA [Concomitant]
  2. PREMARIN [Concomitant]
  3. INDERAL [Concomitant]
  4. ADALAT [Concomitant]
  5. PANTOPRAZOLE SODIUM [Concomitant]
  6. REMICADE [Suspect]
     Indication: CROHN'S DISEASE
     Route: 042
     Dates: start: 20100617, end: 20111122
  7. VITAMIN B-12 [Concomitant]

REACTIONS (1)
  - PRECANCEROUS SKIN LESION [None]
